FAERS Safety Report 4740385-X (Version None)
Quarter: 2005Q3

REPORT INFORMATION
  Report Type: 
  Country: None (occurrence: None)
  Receive Date: 20050805
  Receipt Date: 20050727
  Transmission Date: 20060218
  Serious: Yes (Hospitalization, Other)
  Sender: FDA-Public Use
  Company Number: 2005-07-1988

PATIENT
  Age: 45 Year
  Sex: Male

DRUGS (2)
  1. PEG-INTERFERON ALFA-2B INJECTABLE) [Suspect]
     Indication: HEPATITIS C
     Dosage: 150 MCG
     Dates: start: 20040920, end: 20050620
  2. RIBAVIRIN [Suspect]
     Indication: HEPATITIS C
     Dosage: 1200 MG QD ORAL
     Route: 048
     Dates: start: 20040920, end: 20050620

REACTIONS (6)
  - ALANINE AMINOTRANSFERASE INCREASED [None]
  - CONFUSIONAL STATE [None]
  - DEMENTIA [None]
  - DISORIENTATION [None]
  - MEMORY IMPAIRMENT [None]
  - MOBILITY DECREASED [None]
